FAERS Safety Report 8268472-2 (Version None)
Quarter: 2012Q1

REPORT INFORMATION
  Report Type: 
  Country: None (occurrence: None)
  Receive Date: 20120327
  Receipt Date: 20090720
  Transmission Date: 20120608
  Serious: Yes (Life-Threatening, Hospitalization, Disabling, Other)
  Sender: FDA-Public Use
  Company Number: PHEH2009US06708

PATIENT
  Age: 55 Year
  Sex: Female
  Weight: 68.9 kg

DRUGS (2)
  1. NORVASC [Suspect]
     Indication: HYPERTENSION
     Dates: start: 20080501
  2. GLEEVEC [Suspect]
     Indication: GASTROINTESTINAL STROMAL TUMOUR
     Dosage: 400 MG, BID, ORAL
     Route: 048
     Dates: start: 20080527, end: 20081015

REACTIONS (8)
  - HEADACHE [None]
  - EMOTIONAL DISTRESS [None]
  - OEDEMA PERIPHERAL [None]
  - BONE PAIN [None]
  - ABDOMINAL PAIN UPPER [None]
  - DEPRESSION [None]
  - CHEST PAIN [None]
  - SUICIDAL IDEATION [None]
